FAERS Safety Report 21109347 (Version 2)
Quarter: 2025Q2

REPORT INFORMATION
  Report Type: Report from Study
  Country: DE (occurrence: DE)
  Receive Date: 20220721
  Receipt Date: 20250619
  Transmission Date: 20250717
  Serious: Yes (Congenital Anomaly, Other)
  Sender: AUROBINDO
  Company Number: DE-TEVA-2022-DE-2052145

PATIENT
  Age: 35 Week

DRUGS (3)
  1. BISOPROLOL [Suspect]
     Active Substance: BISOPROLOL
     Indication: Supraventricular tachycardia
     Route: 064
  2. IVABRADINE [Suspect]
     Active Substance: IVABRADINE
     Indication: Supraventricular tachycardia
     Route: 064
  3. METOPROLOL [Suspect]
     Active Substance: METOPROLOL
     Indication: Supraventricular tachycardia
     Route: 064

REACTIONS (4)
  - Cleft palate [Unknown]
  - Atrial septal defect [Recovered/Resolved]
  - Cardiac septal hypertrophy [Unknown]
  - Foetal exposure during pregnancy [Unknown]
